FAERS Safety Report 7990822-2 (Version None)
Quarter: 2011Q4

REPORT INFORMATION
  Report Type: 
  Country: None (occurrence: None)
  Receive Date: 20111219
  Receipt Date: 20111209
  Transmission Date: 20120403
  Serious: Yes (Death, Hospitalization)
  Sender: FDA-Public Use
  Company Number: US-ACTELION-A-NJ2011-58322

PATIENT

DRUGS (9)
  1. METOLAZONE [Concomitant]
  2. DERMADEX [Concomitant]
  3. RISPERDAL [Concomitant]
  4. FLONASE [Concomitant]
  5. INSULIN [Concomitant]
  6. LANOXIN [Concomitant]
  7. ZOLOFT [Concomitant]
  8. TRACLEER [Suspect]
     Indication: PULMONARY ARTERIAL HYPERTENSION
     Dosage: UNK
     Route: 048
     Dates: start: 20040224
  9. COUMADIN [Concomitant]

REACTIONS (4)
  - EYE SWELLING [None]
  - OEDEMA [None]
  - LOSS OF CONSCIOUSNESS [None]
  - AORTIC STENOSIS [None]
